FAERS Safety Report 9772571 (Version 2)
Quarter: 2014Q2

REPORT INFORMATION
  Report Type: Spontaneous
  Country: GB (occurrence: GB)
  Receive Date: 20131219
  Receipt Date: 20140428
  Transmission Date: 20141212
  Serious: Yes (Death, Other)
  Sender: FDA-Public Use
  Company Number: GB-TEVA-450583ISR

PATIENT
  Sex: Male

DRUGS (16)
  1. CLARITHROMYCIN [Suspect]
     Indication: LOWER RESPIRATORY TRACT INFECTION
     Dosage: 500 MILLIGRAM DAILY;
     Route: 065
  2. PHYLLOCONTIN CONTINUS [Interacting]
     Indication: PRODUCT USED FOR UNKNOWN INDICATION
     Route: 065
  3. ALENDRONIC ACID [Concomitant]
  4. ATORVASTATIN [Concomitant]
     Dosage: 20MG, NOCTE
     Dates: end: 20131014
  5. CO-CODAMOL [Concomitant]
     Dosage: 2DF, QID
  6. COMBIVENT [Concomitant]
     Dosage: 1DF, QID
  7. DUTASTERIDE [Concomitant]
     Dosage: 500 MICROGRAM DAILY;
  8. GAVISCON ADVANCE [Concomitant]
  9. IBUPROFEN [Concomitant]
  10. IMUVAC [Concomitant]
  11. PARACETAMOL [Concomitant]
     Dosage: 2DF, Q6H PRN
  12. PREDNISOLONE [Concomitant]
  13. PULMICORT [Concomitant]
  14. SENNA [Concomitant]
     Dosage: 1 OR 2 EACH NIGTH
  15. VENTOLIN [Concomitant]
     Dosage: 2DF, UNK
  16. ZOPICLONE [Concomitant]
     Dosage: 7.5MG, NOCTE PRN

REACTIONS (3)
  - Drug interaction [Fatal]
  - Heart rate increased [Fatal]
  - Dyspnoea [Unknown]
